FAERS Safety Report 15590130 (Version 1)
Quarter: 2018Q4

REPORT INFORMATION
  Report Type: Spontaneous
  Country: US (occurrence: US)
  Receive Date: 20181106
  Receipt Date: 20181106
  Transmission Date: 20190205
  Serious: No
  Sender: FDA-Public Use
  Company Number: US-AMGEN-USASP2018154984

PATIENT
  Age: 66 Year
  Sex: Female

DRUGS (1)
  1. AIMOVIG [Suspect]
     Active Substance: ERENUMAB-AOOE
     Indication: MIGRAINE PROPHYLAXIS
     Dosage: 70 MG, QMO
     Route: 065
     Dates: start: 20181023

REACTIONS (5)
  - Pruritus [Unknown]
  - Injection site pain [Unknown]
  - Dermatitis contact [Unknown]
  - Constipation [Unknown]
  - Migraine [Unknown]

NARRATIVE: CASE EVENT DATE: 2018
